FAERS Safety Report 6303600-7 (Version None)
Quarter: 2009Q3

REPORT INFORMATION
  Report Type: 
  Country: None (occurrence: None)
  Receive Date: 20090807
  Receipt Date: 20090807
  Transmission Date: 20100115
  Serious: Yes (Life-Threatening)
  Sender: FDA-Public Use
  Company Number: None

PATIENT
  Age: 36 Year
  Sex: Female
  Weight: 68.0396 kg

DRUGS (1)
  1. NUCYNTA [Suspect]
     Indication: PAIN
     Dosage: BID PO
     Route: 048

REACTIONS (1)
  - RASH PRURITIC [None]
